FAERS Safety Report 11526661 (Version 1)
Quarter: 2015Q3

REPORT INFORMATION
  Report Type: Spontaneous
  Country: US (occurrence: US)
  Receive Date: 20150903
  Receipt Date: 20150903
  Transmission Date: 20151125
  Serious: No
  Sender: FDA-Public Use
  Company Number: US-ELI_LILLY_AND_COMPANY-US201402003204

PATIENT
  Sex: Male

DRUGS (2)
  1. DULOXETINE HYDROCHLORIDE. [Suspect]
     Active Substance: DULOXETINE HYDROCHLORIDE
     Dosage: 40 MG, UNKNOWN
     Route: 065
  2. DULOXETINE HYDROCHLORIDE. [Suspect]
     Active Substance: DULOXETINE HYDROCHLORIDE
     Indication: NECK PAIN
     Dosage: 60 MG, QD
     Route: 065
     Dates: start: 2012

REACTIONS (7)
  - Insomnia [Unknown]
  - Anxiety [Unknown]
  - Nightmare [Unknown]
  - Paraesthesia [Unknown]
  - Vomiting [Unknown]
  - Tremor [Unknown]
  - Drug withdrawal syndrome [Unknown]
